FAERS Safety Report 23045633 (Version 9)
Quarter: 2024Q3

REPORT INFORMATION
  Report Type: Report from Study
  Country: US (occurrence: US)
  Receive Date: 20231009
  Receipt Date: 20240905
  Transmission Date: 20241016
  Serious: No
  Sender: BIOVITRUM
  Company Number: US-BIOVITRUM-2023-US-015319

PATIENT
  Age: 41 Year
  Sex: Male

DRUGS (7)
  1. DOPTELET [Suspect]
     Active Substance: AVATROMBOPAG MALEATE
     Indication: Immune thrombocytopenia
     Dosage: 20MG, DAILY
     Route: 048
     Dates: start: 20230927
  2. DOPTELET [Suspect]
     Active Substance: AVATROMBOPAG MALEATE
     Dosage: 20 MG EVERY OTHER DAY
     Route: 048
     Dates: start: 20231030
  3. DOPTELET [Suspect]
     Active Substance: AVATROMBOPAG MALEATE
     Dosage: ON TUESDAY^S AND FRIDAY^S SINCE LATE JANUARY OR EARLY FEBRUARY.
     Route: 048
  4. DOPTELET [Suspect]
     Active Substance: AVATROMBOPAG MALEATE
     Dosage: OTHER DAYS OF THE WEEK SINCE LATE JANUARY OR EARLY FEBRUARY
     Route: 048
  5. DOPTELET [Suspect]
     Active Substance: AVATROMBOPAG MALEATE
     Dosage: TUESDAYS AND FRIDAYS HE WAS TAKING A 40 MG DOSE.
     Route: 048
     Dates: start: 202309
  6. DOPTELET [Suspect]
     Active Substance: AVATROMBOPAG MALEATE
     Dosage: MONDAY, WEDNESDAY, THURSDAY, SATURDAY AND SUNDAY HE WAS TAKING A 20 MG DOSE.
     Route: 048
     Dates: start: 202309
  7. DOPTELET [Suspect]
     Active Substance: AVATROMBOPAG MALEATE
     Dosage: 40MG, DAILY
     Route: 048
     Dates: start: 20230927

REACTIONS (31)
  - Dry skin [Unknown]
  - Sunburn [Unknown]
  - Intentional dose omission [Unknown]
  - Acne [Unknown]
  - Paranasal sinus discomfort [Unknown]
  - Mouth haemorrhage [Unknown]
  - Laboratory test abnormal [Unknown]
  - Thrombophlebitis [Unknown]
  - Arthralgia [Unknown]
  - Injection site pain [Unknown]
  - Renal disorder [Unknown]
  - Pain [Unknown]
  - Flank pain [Unknown]
  - Pain in extremity [Recovered/Resolved]
  - Alopecia [Unknown]
  - Stress [Unknown]
  - Platelet count decreased [Unknown]
  - Feeling abnormal [Unknown]
  - Anxiety [Unknown]
  - Depression [Unknown]
  - Product dose omission issue [Unknown]
  - Platelet count abnormal [Unknown]
  - Heart rate increased [Unknown]
  - Blood pressure fluctuation [Unknown]
  - Tremor [Unknown]
  - Fatigue [Unknown]
  - Skin striae [Unknown]
  - Headache [Unknown]
  - Emotional disorder [Unknown]
  - Platelet count increased [Unknown]
  - Skin discolouration [Unknown]
